FAERS Safety Report 9593784 (Version 2)
Quarter: 2013Q4

REPORT INFORMATION
  Report Type: Spontaneous
  Country: US (occurrence: US)
  Receive Date: 20131004
  Receipt Date: 20131004
  Transmission Date: 20140711
  Serious: No
  Sender: FDA-Public Use
  Company Number: US-PURDUE-USA-2012-0089942

PATIENT
  Age: 48 Year
  Sex: Male

DRUGS (2)
  1. BUTRANS [Suspect]
     Indication: PAIN
     Dosage: 20 MCG/HR, UNK
     Route: 062
     Dates: start: 201207
  2. BUTRANS [Suspect]
     Dosage: 10 MCG/HR, UNK
     Route: 062
     Dates: start: 201206, end: 201207

REACTIONS (7)
  - Application site rash [Not Recovered/Not Resolved]
  - Product quality issue [Unknown]
  - Inadequate analgesia [Not Recovered/Not Resolved]
  - Device leakage [Recovered/Resolved]
  - Application site erythema [Not Recovered/Not Resolved]
  - Drug ineffective [Unknown]
  - Product adhesion issue [Unknown]
